FAERS Safety Report 17461352 (Version 2)
Quarter: 2020Q1

REPORT INFORMATION
  Report Type: Spontaneous
  Country: AU (occurrence: AU)
  Receive Date: 20200226
  Receipt Date: 20200312
  Transmission Date: 20200409
  Serious: Yes (Life-Threatening, Hospitalization, Other)
  Sender: FDA-Public Use
  Company Number: NVSC2020AU051002

PATIENT
  Age: 37 Year
  Sex: Male

DRUGS (12)
  1. PREDNISOLONE. [Concomitant]
     Active Substance: PREDNISOLONE
     Indication: PRODUCT USED FOR UNKNOWN INDICATION
     Dosage: 5 MG, QD, FOR LONG TERM
     Route: 048
  2. MEXILETINE [Concomitant]
     Active Substance: MEXILETINE
     Indication: PRODUCT USED FOR UNKNOWN INDICATION
     Route: 065
  3. BISOPROLOL [Suspect]
     Active Substance: BISOPROLOL
     Indication: IMPLANTABLE DEFIBRILLATOR INSERTION
  4. ENTRESTO [Suspect]
     Active Substance: SACUBITRIL\VALSARTAN
     Dosage: 50 MG, BID
     Route: 048
  5. BISOPROLOL [Suspect]
     Active Substance: BISOPROLOL
     Indication: VENTRICULAR TACHYCARDIA
     Dosage: UNK
     Route: 048
  6. FOLIC ACID. [Concomitant]
     Active Substance: FOLIC ACID
     Indication: PRODUCT USED FOR UNKNOWN INDICATION
     Dosage: 5 MG, QW, FOR LONG TERM
     Route: 048
  7. BISOPROLOL [Suspect]
     Active Substance: BISOPROLOL
     Indication: CARDIAC SARCOIDOSIS
     Dosage: 10 MG, QD, FOR LONG TERM
     Route: 048
  8. EPLERENONE. [Concomitant]
     Active Substance: EPLERENONE
     Indication: PRODUCT USED FOR UNKNOWN INDICATION
     Dosage: 25 MG, QD, FOR LONG TERM
     Route: 048
  9. ENTRESTO [Suspect]
     Active Substance: SACUBITRIL\VALSARTAN
     Indication: CARDIAC SARCOIDOSIS
     Dosage: 50 MG
     Route: 048
  10. ENTRESTO [Suspect]
     Active Substance: SACUBITRIL\VALSARTAN
     Indication: VENTRICULAR TACHYCARDIA
     Dosage: 50 MG
     Route: 048
     Dates: start: 20200207
  11. METHOTREXATE. [Concomitant]
     Active Substance: METHOTREXATE
     Indication: PRODUCT USED FOR UNKNOWN INDICATION
     Dosage: 20 MG, QW, FOR LONG TERM
     Route: 048
  12. ENTRESTO [Suspect]
     Active Substance: SACUBITRIL\VALSARTAN
     Indication: IMPLANTABLE DEFIBRILLATOR INSERTION
     Dosage: 50 MG
     Route: 048

REACTIONS (6)
  - Concomitant disease aggravated [Recovered/Resolved]
  - Red cell distribution width decreased [Unknown]
  - Product use in unapproved indication [Unknown]
  - Ventricular tachycardia [Recovering/Resolving]
  - Anion gap increased [Recovered/Resolved]
  - Sarcoidosis [Recovered/Resolved]
